FAERS Safety Report 8801486 (Version 1)
Quarter: 2012Q4

REPORT INFORMATION
  Report Type: 
  Country: US (occurrence: US)
  Receive Date: 20120921
  Receipt Date: 20120921
  Transmission Date: 20130627
  Serious: Yes (Other)
  Sender: FDA-Public Use
  Company Number: US-JNJFOC-20120906580

PATIENT

DRUGS (4)
  1. REOPRO [Suspect]
     Indication: STENT PLACEMENT
     Dosage: 10 mg/5mL
     Route: 042
     Dates: start: 20120908, end: 20120908
  2. EFFIENT [Suspect]
     Indication: STENT PLACEMENT
     Route: 065
     Dates: start: 20120908, end: 20120908
  3. EFFIENT [Suspect]
     Indication: STENT PLACEMENT
     Route: 065
  4. ANGIOMAX [Concomitant]
     Indication: STENT PLACEMENT
     Route: 065

REACTIONS (1)
  - Ulcer haemorrhage [Recovering/Resolving]
